FAERS Safety Report 7648200-1 (Version None)
Quarter: 2011Q3

REPORT INFORMATION
  Report Type: 
  Country: None (occurrence: None)
  Receive Date: 20110801
  Receipt Date: 20110727
  Transmission Date: 20111222
  Serious: No
  Sender: FDA-Public Use
  Company Number: US-PFIZER INC-2011172133

PATIENT
  Age: 80 Year
  Sex: Male

DRUGS (5)
  1. PRISTIQ [Suspect]
     Dosage: 50 MG, UNK
  2. EFFEXOR XR [Suspect]
     Dosage: 150 MG, 2X/DAY
  3. ABILIFY [Suspect]
     Dosage: 2 MG, UNK
  4. LORAZEPAM [Suspect]
     Indication: ANXIETY
     Dosage: UNK
  5. LORAZEPAM [Suspect]
     Indication: SLEEP DISORDER

REACTIONS (1)
  - FEELING ABNORMAL [None]
